FAERS Safety Report 21783942 (Version 1)
Quarter: 2022Q4

REPORT INFORMATION
  Report Type: Spontaneous
  Country: GB (occurrence: GB)
  Receive Date: 20221227
  Receipt Date: 20221227
  Transmission Date: 20230113
  Serious: Yes (Other)
  Sender: FDA-Public Use
  Company Number: GB-002147023-NVSC2022GB297020

PATIENT

DRUGS (7)
  1. METFORMIN [Suspect]
     Active Substance: METFORMIN HYDROCHLORIDE
     Indication: Foetal exposure during pregnancy
     Dosage: MATERNAL EXPOSURE DURING PREGNANCY: 500 MG, QD
     Route: 064
  2. INSULIN NOS [Suspect]
     Active Substance: INSULIN NOS
     Indication: Foetal exposure during pregnancy
     Dosage: MATERNAL EXPOSURE DURING PREGNANCY: UNK (BASAL INSULIN INTRODUCED AT 12 WEEKS GESTATION)
     Route: 064
  3. INSULIN NOS [Suspect]
     Active Substance: INSULIN NOS
     Dosage: MATERNAL EXPOSURE DURING PREGNANCY: UNK (OPTIMISED TO A BASAL BOLUS INSULIN)
     Route: 064
  4. INSULIN NOS [Suspect]
     Active Substance: INSULIN NOS
     Dosage: MATERNAL EXPOSURE DURING PREGNANCY: INCREASED RAPIDLY, PEAKING AT 40 UNITS DAILY BY 29 WEEKS GESTATI
     Route: 064
  5. INSULIN NOS [Suspect]
     Active Substance: INSULIN NOS
     Dosage: MATERNAL EXPOSURE DURING PREGNANCY: UNK (FALLEN STEADILY FROM 30 WEEKS GESTATION)
     Route: 064
  6. OXYTOCIN [Suspect]
     Active Substance: OXYTOCIN
     Indication: Foetal exposure during pregnancy
     Dosage: MATERNAL EXPOSURE DURING PREGNANCY: UNK
     Route: 064
  7. LEVEMIR [Suspect]
     Active Substance: INSULIN DETEMIR
     Indication: Foetal exposure during pregnancy
     Dosage: MATERNAL EXPOSURE DURING PREGNANCY: 2 UNITS
     Route: 064

REACTIONS (3)
  - Foetal hypokinesia [Unknown]
  - Premature baby [Unknown]
  - Foetal exposure during pregnancy [Unknown]
